FAERS Safety Report 9540872 (Version 1)
Quarter: 2013Q3

REPORT INFORMATION
  Report Type: Report from Study
  Country: AU (occurrence: AU)
  Receive Date: 20130920
  Receipt Date: 20130920
  Transmission Date: 20140515
  Serious: Yes (Hospitalization)
  Sender: FDA-Public Use
  Company Number: PHHY2013AU104975

PATIENT
  Sex: Male

DRUGS (2)
  1. CLOZARIL [Suspect]
     Dosage: 475 MG
     Dates: start: 20070821, end: 20130913
  2. CLOZARIL [Suspect]
     Dosage: UNK

REACTIONS (2)
  - Malaise [Unknown]
  - Hepatic enzyme abnormal [Unknown]
